FAERS Safety Report 8211383-9 (Version None)
Quarter: 2012Q1

REPORT INFORMATION
  Report Type: 
  Country: None (occurrence: None)
  Receive Date: 20120228
  Receipt Date: 20110908
  Transmission Date: 20120608
  Serious: Yes (Hospitalization, Other)
  Sender: FDA-Public Use
  Company Number: 2011BH023403

PATIENT
  Age: 82 Year
  Sex: Female
  Weight: 67.6 kg

DRUGS (5)
  1. ZOSYN [Concomitant]
  2. LOVENOX [Concomitant]
  3. BREVIBLOC [Suspect]
     Indication: ATRIAL FIBRILLATION
     Dosage: IV
     Route: 042
     Dates: start: 20110717, end: 20110720
  4. PEPCID [Concomitant]
  5. INSULIN [Concomitant]

REACTIONS (2)
  - EXTRAVASATION [None]
  - SOFT TISSUE INJURY [None]
